FAERS Safety Report 8865820 (Version 1)
Quarter: 2012Q4

REPORT INFORMATION
  Report Type: 
  Country: US (occurrence: US)
  Receive Date: 20121024
  Receipt Date: 20121024
  Transmission Date: 20130627
  Serious: No
  Sender: FDA-Public Use
  Company Number: US-AMGEN-USASP2012002659

PATIENT
  Age: 66 Year
  Sex: Female

DRUGS (6)
  1. ENBREL [Suspect]
     Indication: PRODUCT USED FOR UNKNOWN INDICATION
     Dosage: 50 mg, qwk
     Route: 058
  2. METHOTREXATE [Concomitant]
     Dosage: 2.5 mg, UNK
     Route: 048
  3. PREDNISONE [Concomitant]
     Dosage: 50 mg, UNK
     Route: 048
  4. MELOXICAM [Concomitant]
     Dosage: 7.5 mg, UNK
     Route: 048
  5. OMEPRAZOLE [Concomitant]
     Dosage: 40 mg, UNK
     Route: 048
  6. MULTIVITAMIN                       /00097801/ [Concomitant]
     Dosage: UNK

REACTIONS (5)
  - Nasopharyngitis [Unknown]
  - Joint swelling [Unknown]
  - Arthralgia [Unknown]
  - Feeling hot [Unknown]
  - Gastrooesophageal reflux disease [Unknown]
